FAERS Safety Report 5208697-3 (Version None)
Quarter: 2007Q1

REPORT INFORMATION
  Report Type: 
  Country: None (occurrence: None)
  Receive Date: 20070116
  Receipt Date: 20070105
  Transmission Date: 20070707
  Serious: Yes (Hospitalization)
  Sender: FDA-Public Use
  Company Number: PHRM2007FR00484

PATIENT
  Age: 66 Year
  Sex: Male

DRUGS (4)
  1. ZOMETA [Suspect]
     Indication: MULTIPLE MYELOMA
     Route: 042
     Dates: start: 20040301, end: 20050901
  2. LYTOS [Suspect]
     Route: 048
     Dates: start: 20031101, end: 20040330
  3. LYTOS [Suspect]
     Dates: start: 20051020
  4. AREDIA [Suspect]
     Indication: MULTIPLE MYELOMA
     Route: 042
     Dates: start: 20020522, end: 20030701

REACTIONS (5)
  - ABSCESS JAW [None]
  - EXOSTOSIS [None]
  - OSTEITIS [None]
  - SURGERY [None]
  - TOOTH EXTRACTION [None]
